FAERS Safety Report 5166473-4 (Version None)
Quarter: 2006Q4

REPORT INFORMATION
  Report Type: 
  Country: None (occurrence: None)
  Receive Date: 20061129
  Receipt Date: 20061114
  Transmission Date: 20070319
  Serious: Yes (Death)
  Sender: FDA-Public Use
  Company Number: TNZFR200600133

PATIENT
  Age: 92 Year
  Sex: Female

DRUGS (1)
  1. INNOHEP [Suspect]

REACTIONS (1)
  - LYMPHOMA [None]
